FAERS Safety Report 5108174-4 (Version None)
Quarter: 2006Q3

REPORT INFORMATION
  Report Type: 
  Country: None (occurrence: None)
  Receive Date: 20060919
  Receipt Date: 20060526
  Transmission Date: 20061208
  Serious: Yes (Other)
  Sender: FDA-Public Use
  Company Number: JP-ROCHE-449912

PATIENT
  Age: 46 Year
  Sex: Female
  Weight: 45 kg

DRUGS (13)
  1. XELODA [Suspect]
     Indication: BREAST CANCER METASTATIC
     Dosage: 3 WEEKS ADMINISTRATION FOLLOWED BY 1 WEEK REST
     Route: 048
     Dates: start: 20050707, end: 20060526
  2. LENDORMIN [Concomitant]
     Dosage: STARTED BEFORE FEB 2005
     Route: 048
  3. LOXONIN [Concomitant]
     Dosage: STARTED BEFORE FEB 2005
     Route: 048
     Dates: end: 20060703
  4. SELBEX [Concomitant]
     Dosage: STARTED BEFORE FEB 2005
     Route: 048
     Dates: end: 20060703
  5. LAFUTIDINE [Concomitant]
     Dosage: DRUG REPORTED AS ^PROTECADIN (LAFUTIDINE)^ STARTED BEFORE FEB 2005
     Route: 048
  6. 1 CONCOMITANT DRUG [Concomitant]
     Dosage: DRUG REPORTED AS ^MALFA^ STARTED BEFORE FEB 2005
     Route: 048
     Dates: end: 20060703
  7. JUVELA [Concomitant]
     Dosage: STARTED BEFORE FEB 2005
     Route: 048
     Dates: end: 20060410
  8. 1 CONCOMITANT DRUG [Concomitant]
     Dosage: DRUG REPORTED AS ^GOSHA-JINKI-GAN^
     Route: 048
     Dates: start: 20050510, end: 20060123
  9. PREDONINE [Concomitant]
     Route: 048
     Dates: start: 20050707, end: 20060410
  10. VOLTAREN [Concomitant]
     Route: 048
     Dates: start: 20050726, end: 20060703
  11. OXYCONTIN [Concomitant]
     Route: 048
     Dates: start: 20050810, end: 20060727
  12. PURSENNID [Concomitant]
     Route: 048
     Dates: start: 20050816
  13. CLARITHROMYCIN [Concomitant]
     Route: 048
     Dates: start: 20060314

REACTIONS (2)
  - CONSTIPATION [None]
  - LEUKOENCEPHALOPATHY [None]
